FAERS Safety Report 24691684 (Version 1)
Quarter: 2024Q4

REPORT INFORMATION
  Report Type: Spontaneous
  Country: US (occurrence: None)
  Receive Date: 20241203
  Receipt Date: 20241203
  Transmission Date: 20250114
  Serious: Yes (Hospitalization)
  Sender: Public
  Company Number: None

PATIENT
  Age: 75 Year
  Sex: Male

DRUGS (1)
  1. DABIGATRAN ETEXILATE [Suspect]
     Active Substance: DABIGATRAN ETEXILATE
     Indication: Atrial fibrillation
     Dates: start: 20241015, end: 20241029

REACTIONS (2)
  - Haematuria [None]
  - Haemorrhage [None]

NARRATIVE: CASE EVENT DATE: 20241016
